FAERS Safety Report 6121894-8 (Version None)
Quarter: 2009Q1

REPORT INFORMATION
  Report Type: 
  Country: None (occurrence: None)
  Receive Date: 20090317
  Receipt Date: 20090305
  Transmission Date: 20090719
  Serious: Yes (Death, Other)
  Sender: FDA-Public Use
  Company Number: CO-PFIZER INC-2009174419

PATIENT

DRUGS (3)
  1. ZOLOFT [Suspect]
     Dosage: 75 MG, 1X/DAY
     Route: 048
     Dates: end: 20081206
  2. ALL OTHER THERAPEUTIC PRODUCTS [Concomitant]
     Dosage: 50 MG, 1X/DAY
  3. HIDROXIUREA [Concomitant]

REACTIONS (3)
  - METASTASES TO BONE [None]
  - METASTASES TO LUNG [None]
  - RESPIRATORY TRACT HAEMORRHAGE [None]
